FAERS Safety Report 6453333-1 (Version None)
Quarter: 2009Q4

REPORT INFORMATION
  Report Type: 
  Country: None (occurrence: None)
  Receive Date: 20091124
  Receipt Date: 20091116
  Transmission Date: 20100525
  Serious: Yes (Other)
  Sender: FDA-Public Use
  Company Number: AR-ASTRAZENECA-2009SE26628

PATIENT
  Age: 34 Year
  Sex: Female

DRUGS (1)
  1. ZOLADEX [Suspect]
     Indication: NEOPLASM
     Route: 058
     Dates: start: 20090201

REACTIONS (1)
  - HEPATITIS [None]
